FAERS Safety Report 8423968-5 (Version None)
Quarter: 2012Q2

REPORT INFORMATION
  Report Type: 
  Country: None (occurrence: None)
  Receive Date: 20120608
  Receipt Date: 20120529
  Transmission Date: 20120825
  Serious: Yes (Hospitalization)
  Sender: FDA-Public Use
  Company Number: KR-ELI_LILLY_AND_COMPANY-KR201201001597

PATIENT
  Sex: Female
  Weight: 72.4 kg

DRUGS (10)
  1. CILOSTAZOL [Concomitant]
     Indication: NEUROPATHY PERIPHERAL
     Dosage: UNK
     Dates: start: 20090807, end: 20111225
  2. ATORVASTATIN CALCIUM [Concomitant]
     Indication: DYSLIPIDAEMIA
     Dosage: UNK
     Dates: start: 20090807
  3. EXENATIDE [Suspect]
     Indication: TYPE 2 DIABETES MELLITUS
     Dosage: 5 UG, BID
     Route: 058
     Dates: start: 20110711, end: 20110804
  4. CARBAMAZEPINE [Concomitant]
     Indication: NEUROPATHY PERIPHERAL
     Dosage: UNK
     Dates: start: 20090807
  5. TRAMADOL HYDROCHLORIDE/ACETAMINOPHEN [Concomitant]
     Indication: NEUROPATHY PERIPHERAL
     Dosage: UNK
     Dates: start: 20090806
  6. PREGABALIN [Concomitant]
     Indication: NEUROPATHY PERIPHERAL
     Dosage: UNK
     Dates: start: 20100205
  7. EXENATIDE [Suspect]
     Dosage: 10 UG, BID
     Route: 058
     Dates: start: 20110805, end: 20111221
  8. EXFORGE [Concomitant]
     Indication: HYPERTENSION
     Dosage: UNK
     Dates: start: 20110711
  9. CARVEDILOL [Concomitant]
     Indication: HYPERTENSION
     Dosage: UNK
     Dates: start: 20100330
  10. AMITRIPTLINE HYDROCHLORIDE TAB [Concomitant]
     Indication: NEUROPATHY PERIPHERAL
     Dosage: UNK
     Dates: start: 20101012

REACTIONS (1)
  - COLON CANCER [None]
